FAERS Safety Report 25066095 (Version 1)
Quarter: 2025Q1

REPORT INFORMATION
  Report Type: Spontaneous
  Country: US (occurrence: US)
  Receive Date: 20250312
  Receipt Date: 20250312
  Transmission Date: 20250409
  Serious: No
  Sender: UPSHER SMITH LABORATORIES
  Company Number: US-UPSHER-SMITH LABORATORIES, LLC-2024USL00371

PATIENT
  Sex: Female
  Weight: 53.515 kg

DRUGS (2)
  1. PREVALITE [Suspect]
     Active Substance: CHOLESTYRAMINE
     Indication: Diverticulitis
     Route: 048
     Dates: start: 202403, end: 2024
  2. PREVALITE [Suspect]
     Active Substance: CHOLESTYRAMINE
     Indication: Gastrointestinal disorder
     Route: 048
     Dates: start: 2024

REACTIONS (1)
  - Dental caries [Not Recovered/Not Resolved]

NARRATIVE: CASE EVENT DATE: 20240101
